FAERS Safety Report 26154647 (Version 1)
Quarter: 2025Q4

REPORT INFORMATION
  Report Type: Spontaneous
  Country: US (occurrence: US)
  Receive Date: 20251215
  Receipt Date: 20251215
  Transmission Date: 20260118
  Serious: Yes (Other)
  Sender: ALEXION PHARMACEUTICALS
  Company Number: US-ASTRAZENECA-202512NAM009881US

PATIENT
  Sex: Female

DRUGS (3)
  1. TICAGRELOR [Interacting]
     Active Substance: TICAGRELOR
     Route: 065
  2. XARELTO [Interacting]
     Active Substance: RIVAROXABAN
     Route: 065
  3. RIFAMPIN [Interacting]
     Active Substance: RIFAMPIN
     Route: 065

REACTIONS (2)
  - Atypical mycobacterial infection [Unknown]
  - Drug interaction [Unknown]
